FAERS Safety Report 16651542 (Version 1)
Quarter: 2019Q3

REPORT INFORMATION
  Report Type: Spontaneous
  Country: US (occurrence: US)
  Receive Date: 20190730
  Receipt Date: 20190730
  Transmission Date: 20191004
  Serious: Yes (Hospitalization)
  Sender: FDA-Public Use
  Company Number: None

PATIENT
  Age: 70 Year
  Sex: Male
  Weight: 64.8 kg

DRUGS (1)
  1. OXALIPLATIN. [Suspect]
     Active Substance: OXALIPLATIN
     Indication: COLON CANCER
     Dosage: ?          OTHER FREQUENCY:EVERY 14 DAYS;?
     Route: 042
     Dates: start: 20190502, end: 20190725

REACTIONS (6)
  - Proctalgia [None]
  - Flushing [None]
  - Feeling abnormal [None]
  - Frequent bowel movements [None]
  - Restlessness [None]
  - Pain [None]

NARRATIVE: CASE EVENT DATE: 20190725
